FAERS Safety Report 9797521 (Version 1)
Quarter: 2014Q1

REPORT INFORMATION
  Report Type: Spontaneous
  Country: DE (occurrence: DE)
  Receive Date: 20140106
  Receipt Date: 20140106
  Transmission Date: 20141002
  Serious: Yes (Congenital Anomaly)
  Sender: FDA-Public Use
  Company Number: ALCN2013DE006333

PATIENT
  Age: 1 Day
  Sex: Male

DRUGS (3)
  1. AZOPT [Suspect]
     Dosage: UNK
     Route: 064
  2. AZOPT [Suspect]
     Dosage: UNK
  3. FOLIO [Concomitant]
     Dosage: MATERNAL DOSE: 0.4 MG, QD
     Route: 064

REACTIONS (2)
  - Polydactyly [Unknown]
  - Foetal exposure during pregnancy [Unknown]
